FAERS Safety Report 6515481-7 (Version None)
Quarter: 2009Q4

REPORT INFORMATION
  Report Type: 
  Country: None (occurrence: None)
  Receive Date: 20091223
  Receipt Date: 20091217
  Transmission Date: 20100525
  Serious: Yes (Other)
  Sender: FDA-Public Use
  Company Number: US-ROCHE-675459

PATIENT
  Sex: Female
  Weight: 64.4 kg

DRUGS (1)
  1. CAPECITABINE [Suspect]
     Indication: BREAST CANCER
     Dosage: 2-500 MG TABLETS
     Route: 048
     Dates: start: 20090903, end: 20091216

REACTIONS (1)
  - MALIGNANT NEOPLASM PROGRESSION [None]
